FAERS Safety Report 4808598-6 (Version None)
Quarter: 2005Q4

REPORT INFORMATION
  Report Type: 
  Country: None (occurrence: None)
  Receive Date: 20051025
  Receipt Date: 20051013
  Transmission Date: 20060501
  Serious: Yes (Disabling, Congenital Anomaly)
  Sender: FDA-Public Use
  Company Number: FR-GLAXOSMITHKLINE-B0398023A

PATIENT
  Sex: Female
  Weight: 3.1 kg

DRUGS (4)
  1. MALARONE [Suspect]
     Dates: start: 20040101, end: 20040101
  2. ZECLAR [Suspect]
     Indication: PHARYNGITIS
     Dates: start: 20040201, end: 20040201
  3. ZITHROMAX [Suspect]
     Dates: start: 20040101, end: 20040101
  4. CLAMOXYL [Concomitant]
     Dates: start: 20040101, end: 20040101

REACTIONS (3)
  - ANAL ATRESIA [None]
  - DRUG EXPOSURE DURING PREGNANCY [None]
  - FALLOT'S TETRALOGY [None]
